FAERS Safety Report 20606344 (Version 1)
Quarter: 2022Q1

REPORT INFORMATION
  Report Type: Spontaneous
  Country: US (occurrence: None)
  Receive Date: 20220316
  Receipt Date: 20220316
  Transmission Date: 20220423
  Serious: Yes (Death)
  Sender: FDA-Public Use
  Company Number: None

PATIENT
  Sex: Male

DRUGS (13)
  1. TAFINLAR [Suspect]
     Active Substance: DABRAFENIB MESYLATE
     Indication: Langerhans^ cell histiocytosis
     Dosage: FREQUENCY : TWICE A DAY;?
     Route: 048
     Dates: start: 20220212, end: 202203
  2. BACTRIM DS TAB [Concomitant]
  3. FAMOTIDINE TAB [Concomitant]
  4. FUROSEMIDE TAB [Concomitant]
  5. LACTULOSE [Concomitant]
     Active Substance: LACTULOSE
  6. MULTIVITAMIN TAB [Concomitant]
  7. SIMETHICONE CHW [Concomitant]
  8. SPIRONOLACT TAB [Concomitant]
  9. URSODIOL CAP [Concomitant]
  10. VITAMIN A CAP [Concomitant]
  11. VITAMIN C TAB [Concomitant]
  12. VITAMIN D3 [Concomitant]
     Active Substance: CHOLECALCIFEROL
  13. VITAMIN K2 TAB [Concomitant]

REACTIONS (1)
  - Death [None]

NARRATIVE: CASE EVENT DATE: 20220301
